FAERS Safety Report 19694654 (Version 1)
Quarter: 2021Q3

REPORT INFORMATION
  Report Type: Spontaneous
  Country: FR (occurrence: FR)
  Receive Date: 20210812
  Receipt Date: 20210812
  Transmission Date: 20211014
  Serious: Yes (Life-Threatening, Hospitalization, Other)
  Sender: FDA-Public Use
  Company Number: FR-BRISTOL-MYERS SQUIBB COMPANY-BMS-2021-078221

PATIENT
  Age: 78 Year
  Sex: Male
  Weight: 102.6 kg

DRUGS (15)
  1. ELIQUIS [Suspect]
     Active Substance: APIXABAN
     Indication: THROMBOSIS PROPHYLAXIS
     Dosage: 1 DOSAGE FORM, DAILY (FREQUENCY NOT SPECIFIED)
     Route: 048
     Dates: start: 20210709, end: 20210712
  2. ACIDE CLAVULANIQUE [Concomitant]
     Active Substance: CLAVULANIC ACID
     Indication: OSTEITIS
     Dosage: 1 GRAM, Q8H
     Route: 042
     Dates: start: 20210605, end: 20210618
  3. ENOXAPARINE SODIQUE ((MAMMIFERE/PORC/MUQUEUSE INTESTINALE)) [Suspect]
     Active Substance: ENOXAPARIN SODIUM
     Indication: ATRIAL FIBRILLATION
     Dosage: 4000 INTERNATIONAL UNIT,DAILY
     Route: 058
     Dates: start: 20210604, end: 20210709
  4. AMOXICILLINE [Concomitant]
     Active Substance: AMOXICILLIN
     Indication: OSTEITIS
     Dosage: 1 GRAM, Q8H
     Route: 042
     Dates: start: 20210605, end: 20210618
  5. TEICOPLANINE [Suspect]
     Active Substance: TEICOPLANIN
     Indication: OSTEITIS
     Dosage: 1200 MILLIGRAM, Q12H
     Route: 042
     Dates: start: 20210702, end: 20210712
  6. ERTAPENEM. [Suspect]
     Active Substance: ERTAPENEM SODIUM
     Indication: OSTEITIS
     Dosage: 1 GRAM,DAILY
     Route: 042
     Dates: start: 20210702, end: 20210712
  7. NEBIVOLOL. [Concomitant]
     Active Substance: NEBIVOLOL
     Indication: MYOCARDIAL ISCHAEMIA
     Dosage: 5 MILLIGRAM,DAILY
     Route: 048
     Dates: start: 20210614
  8. ATORVASTATINE [Suspect]
     Active Substance: ATORVASTATIN
     Indication: MYOCARDIAL ISCHAEMIA
     Dosage: 40 MILLIGRAM,DAILY
     Route: 048
     Dates: start: 20210615, end: 20210802
  9. FUROSEMIDE. [Suspect]
     Active Substance: FUROSEMIDE
     Dosage: 60 MILLIGRAM,DAILY
     Route: 048
     Dates: start: 20210702, end: 20210709
  10. AMOXICILLINE [Concomitant]
     Active Substance: AMOXICILLIN
     Dosage: 1 GRAM, Q8H
     Route: 048
     Dates: start: 20210618, end: 20210629
  11. CANDESARTAN CILEXETIL. [Concomitant]
     Active Substance: CANDESARTAN CILEXETIL
     Indication: HYPERTENSION
     Dosage: 1 DOSAGE FORM, DAILY
     Route: 048
     Dates: start: 20210603, end: 20210711
  12. FUROSEMIDE. [Suspect]
     Active Substance: FUROSEMIDE
     Indication: CARDIAC FAILURE
     Dosage: 40 MILLIGRAM, DAILY
     Route: 048
     Dates: start: 20210608, end: 20210611
  13. FUROSEMIDE. [Suspect]
     Active Substance: FUROSEMIDE
     Dosage: 60 MILLIGRAM, DAILY
     Route: 048
     Dates: start: 20210612, end: 20210614
  14. FUROSEMIDE. [Suspect]
     Active Substance: FUROSEMIDE
     Dosage: 80 MILLIGRAM,DAILY
     Route: 048
     Dates: start: 20210615, end: 20210701
  15. ACIDE CLAVULANIQUE [Concomitant]
     Active Substance: CLAVULANIC ACID
     Dosage: 1 GRAM, Q8H
     Route: 048
     Dates: start: 20210618, end: 20210629

REACTIONS (1)
  - Thrombocytopenia [Recovering/Resolving]

NARRATIVE: CASE EVENT DATE: 20210711
